FAERS Safety Report 16836112 (Version 1)
Quarter: 2019Q3

REPORT INFORMATION
  Report Type: Spontaneous
  Country: US (occurrence: US)
  Receive Date: 20190921
  Receipt Date: 20190921
  Transmission Date: 20191005
  Serious: No
  Sender: FDA-Public Use
  Company Number: US-009507513-1908USA012136

PATIENT
  Age: 75 Year
  Sex: Female

DRUGS (9)
  1. PROAIR HFA [Concomitant]
     Active Substance: ALBUTEROL SULFATE
  2. COUMADIN [Concomitant]
     Active Substance: WARFARIN SODIUM
  3. FUROSEMIDE. [Concomitant]
     Active Substance: FUROSEMIDE
  4. METOPROLOL. [Concomitant]
     Active Substance: METOPROLOL
  5. DULERA [Suspect]
     Active Substance: FORMOTEROL FUMARATE DIHYDRATE\MOMETASONE FUROATE
     Indication: CHRONIC OBSTRUCTIVE PULMONARY DISEASE
     Dosage: PRESCRIBED AS: 2 PUFFS IN MORNING, 2 PUFFS IN EVENING
  6. POTASSIUM (UNSPECIFIED) [Concomitant]
     Active Substance: POTASSIUM
  7. DULERA [Suspect]
     Active Substance: FORMOTEROL FUMARATE DIHYDRATE\MOMETASONE FUROATE
     Indication: WHEEZING
  8. PRAVASTATIN. [Concomitant]
     Active Substance: PRAVASTATIN
  9. CHOLECALCIFEROL [Concomitant]
     Active Substance: CHOLECALCIFEROL

REACTIONS (3)
  - Circumstance or information capable of leading to medication error [Unknown]
  - Arthralgia [Unknown]
  - Product quality issue [Unknown]

NARRATIVE: CASE EVENT DATE: 20190828
